FAERS Safety Report 7435056-5 (Version None)
Quarter: 2011Q2

REPORT INFORMATION
  Report Type: 
  Country: None (occurrence: None)
  Receive Date: 20110425
  Receipt Date: 20110413
  Transmission Date: 20111010
  Serious: Yes (Hospitalization)
  Sender: FDA-Public Use
  Company Number: PHHY2011ZA31855

PATIENT
  Sex: Female

DRUGS (2)
  1. ACLASTA [Suspect]
     Dosage: 5 MG/100 ML
     Route: 042
     Dates: start: 20100301
  2. ACLASTA [Suspect]
     Dosage: 5 MG, UNK
     Route: 042

REACTIONS (1)
  - DEEP VEIN THROMBOSIS [None]
